FAERS Safety Report 8034547-6 (Version None)
Quarter: 2012Q1

REPORT INFORMATION
  Report Type: 
  Country: None (occurrence: None)
  Receive Date: 20120110
  Receipt Date: 20120104
  Transmission Date: 20120608
  Serious: Yes (Hospitalization)
  Sender: FDA-Public Use
  Company Number: US-B.I. PHARMACEUTICALS,INC./RIDGEFIELD-2011-BP-27920BP

PATIENT
  Sex: Female

DRUGS (4)
  1. CARDIZEM [Concomitant]
     Indication: HYPERTENSION
     Dosage: 300 MG
     Route: 048
     Dates: start: 20060101
  2. DILTIAZEM CD [Concomitant]
     Dosage: 240 MG
  3. ASPIRIN [Concomitant]
     Indication: CEREBROVASCULAR ACCIDENT PROPHYLAXIS
     Dosage: 325 MG
     Route: 048
     Dates: start: 20111110
  4. ZANTAC 150 [Suspect]
     Indication: DYSPEPSIA
     Dosage: 300 MG
     Route: 048
     Dates: start: 20111012, end: 20111119

REACTIONS (6)
  - TREMOR [None]
  - ATAXIA [None]
  - DYSARTHRIA [None]
  - FATIGUE [None]
  - CONFUSIONAL STATE [None]
  - GAIT DISTURBANCE [None]
